FAERS Safety Report 6034888-8 (Version None)
Quarter: 2009Q1

REPORT INFORMATION
  Report Type: 
  Country: None (occurrence: None)
  Receive Date: 20090112
  Receipt Date: 20081231
  Transmission Date: 20090719
  Serious: Yes (Other)
  Sender: FDA-Public Use
  Company Number: GB-PFIZER INC-2009150790

PATIENT

DRUGS (4)
  1. CHAMPIX [Suspect]
     Indication: SMOKING CESSATION THERAPY
     Route: 048
     Dates: start: 20081114, end: 20081216
  2. AMITRIPTYLINE [Concomitant]
  3. NAPROXEN [Concomitant]
  4. ORAMORPH SR [Concomitant]

REACTIONS (4)
  - CHEST DISCOMFORT [None]
  - NAUSEA [None]
  - PANIC ATTACK [None]
  - TEARFULNESS [None]
